FAERS Safety Report 9485147 (Version 2)
Quarter: 2013Q3

REPORT INFORMATION
  Report Type: Spontaneous
  Country: US (occurrence: US)
  Receive Date: 20130828
  Receipt Date: 20130911
  Transmission Date: 20140515
  Serious: No
  Sender: FDA-Public Use
  Company Number: US-009507513-1308USA012209

PATIENT
  Sex: Female

DRUGS (4)
  1. REBETOL [Suspect]
     Indication: HEPATITIS C
     Dosage: UNK
     Route: 048
     Dates: start: 2000
  2. REBETOL [Suspect]
     Dosage: UNK
     Route: 048
     Dates: start: 20130823, end: 2013
  3. PEGINTRON [Suspect]
     Indication: HEPATITIS C
     Dosage: REDIPEN
     Dates: start: 20130823
  4. IBUPROFEN [Concomitant]
     Indication: ARTHRITIS

REACTIONS (8)
  - Chills [Unknown]
  - Influenza [Recovered/Resolved]
  - Feeling hot [Unknown]
  - Fluid intake reduced [Unknown]
  - Fatigue [Unknown]
  - Pain [Unknown]
  - Mood swings [Unknown]
  - Influenza [Unknown]
